FAERS Safety Report 7505022-X (Version None)
Quarter: 2011Q2

REPORT INFORMATION
  Report Type: 
  Country: None (occurrence: None)
  Receive Date: 20110526
  Receipt Date: 20110517
  Transmission Date: 20111010
  Serious: No
  Sender: FDA-Public Use
  Company Number: US-BIOGENIDEC-2011BI018675

PATIENT
  Age: 42 Year
  Sex: Female

DRUGS (1)
  1. TYSABRI [Suspect]
     Indication: MULTIPLE SCLEROSIS
     Route: 042
     Dates: start: 20110321

REACTIONS (6)
  - HYPERGEUSIA [None]
  - MUSCLE SPASMS [None]
  - PYREXIA [None]
  - URINARY TRACT INFECTION [None]
  - PAROSMIA [None]
  - SINUSITIS [None]
